FAERS Safety Report 6935818-4 (Version None)
Quarter: 2010Q3

REPORT INFORMATION
  Report Type: 
  Country: None (occurrence: None)
  Receive Date: 20100823
  Receipt Date: 20100809
  Transmission Date: 20110219
  Serious: Yes (Other)
  Sender: FDA-Public Use
  Company Number: PHHY2010US52573

PATIENT
  Sex: Male
  Weight: 88 kg

DRUGS (5)
  1. EXJADE [Suspect]
     Indication: MYELODYSPLASTIC SYNDROME
     Dosage: 1750 MG, QD
     Route: 048
  2. REVLIMID [Concomitant]
     Indication: MYELODYSPLASTIC SYNDROME
     Dosage: UNK
     Dates: start: 20080822, end: 20080905
  3. NEULASTA [Concomitant]
  4. CUMERS [Concomitant]
  5. VIDOZA [Concomitant]
     Indication: MYELODYSPLASTIC SYNDROME
     Dosage: UNK
     Dates: start: 20091201, end: 20100402

REACTIONS (2)
  - ACUTE MYELOID LEUKAEMIA [None]
  - LIFE EXPECTANCY SHORTENED [None]
